FAERS Safety Report 9643416 (Version 1)
Quarter: 2013Q4

REPORT INFORMATION
  Report Type: Spontaneous
  Country: FR (occurrence: None)
  Receive Date: 20131022
  Receipt Date: 20131022
  Transmission Date: 20140711
  Serious: Yes (Hospitalization)
  Sender: FDA-Public Use
  Company Number: 2013-DR-001899

PATIENT
  Age: 21 Year
  Sex: Male

DRUGS (1)
  1. XYREM [Suspect]
     Route: 048
     Dates: start: 20110906, end: 2011

REACTIONS (2)
  - Gastrointestinal disorder [None]
  - Anaemia [None]
